FAERS Safety Report 21838401 (Version 3)
Quarter: 2024Q2

REPORT INFORMATION
  Report Type: Spontaneous
  Country: US (occurrence: US)
  Receive Date: 20230109
  Receipt Date: 20240405
  Transmission Date: 20240716
  Serious: No
  Sender: FDA-Public Use
  Company Number: US-SA-SAC20230106000352

PATIENT
  Age: 38 Year
  Sex: Female
  Weight: 77.1 kg

DRUGS (2)
  1. DUPIXENT [Suspect]
     Active Substance: DUPILUMAB
     Indication: Dermatitis atopic
     Dosage: 300 MG, QOW
     Route: 058
  2. DUPIXENT [Suspect]
     Active Substance: DUPILUMAB
     Indication: Eczema
     Dosage: 300 MG, Q10D
     Route: 058
     Dates: start: 20211020

REACTIONS (7)
  - Dermatitis atopic [Unknown]
  - Therapeutic response shortened [Unknown]
  - Eczema [Unknown]
  - Dry skin [Unknown]
  - Therapeutic product effect decreased [Unknown]
  - Dry eye [Recovered/Resolved]
  - Inappropriate schedule of product administration [Unknown]

NARRATIVE: CASE EVENT DATE: 20230101
